FAERS Safety Report 6523846-2 (Version None)
Quarter: 2009Q4

REPORT INFORMATION
  Report Type: 
  Country: None (occurrence: None)
  Receive Date: 20091231
  Receipt Date: 20091221
  Transmission Date: 20100525
  Serious: Yes (Hospitalization)
  Sender: FDA-Public Use
  Company Number: US-ABBOTT-09P-163-0578787-00

PATIENT
  Sex: Female
  Weight: 52.7 kg

DRUGS (16)
  1. HUMIRA [Suspect]
     Indication: RHEUMATOID ARTHRITIS
     Route: 058
     Dates: start: 20010607, end: 20090430
  2. METHOTREXATE [Concomitant]
     Indication: RHEUMATOID ARTHRITIS
     Route: 048
     Dates: start: 20080924
  3. FOLIC ACID [Concomitant]
     Indication: RHEUMATOID ARTHRITIS
     Dates: start: 19980507
  4. DIOVAN HCT [Concomitant]
     Indication: HYPERTENSION
     Dosage: 160/12.5 MG TABLET
     Dates: start: 20030122
  5. NEXIUM [Concomitant]
     Indication: GASTROOESOPHAGEAL REFLUX DISEASE
     Dates: start: 20030523
  6. DICYCLOMINE HCL [Concomitant]
     Indication: DIARRHOEA
     Dates: start: 20040114
  7. DICYCLOMINE HCL [Concomitant]
     Indication: IRRITABLE BOWEL SYNDROME
  8. CALCIUM [Concomitant]
     Indication: OSTEOPENIA
     Dates: start: 20050126, end: 20090607
  9. MULTI-VITAMIN [Concomitant]
     Indication: OSTEOPENIA
     Route: 048
     Dates: start: 20050126, end: 20090607
  10. FERROUS SULFATE TAB [Concomitant]
     Indication: ANAEMIA
     Dates: start: 20060922, end: 20090601
  11. FERROUS SULFATE TAB [Concomitant]
     Dates: start: 20090602
  12. PREMPRO [Concomitant]
     Indication: HORMONE REPLACEMENT THERAPY
     Dates: start: 20070404
  13. VICODIN [Concomitant]
     Indication: RHEUMATOID ARTHRITIS
     Dates: start: 20080103, end: 20090607
  14. METHADONE [Concomitant]
     Indication: SPINAL COMPRESSION FRACTURE
     Dates: start: 20080514, end: 20090623
  15. VICODIN [Concomitant]
     Indication: BREAKTHROUGH PAIN
     Dosage: 5/500 MG
     Dates: start: 20080103
  16. POLYETHYLENE GLYCOL [Concomitant]
     Indication: IRRITABLE BOWEL SYNDROME
     Route: 048
     Dates: start: 20081101, end: 20090624

REACTIONS (1)
  - NON-SMALL CELL LUNG CANCER [None]
